FAERS Safety Report 4467824-6 (Version None)
Quarter: 2004Q4

REPORT INFORMATION
  Report Type: 
  Country: None (occurrence: None)
  Receive Date: 20041007
  Receipt Date: 20040930
  Transmission Date: 20050328
  Serious: Yes (Other)
  Sender: FDA-Public Use
  Company Number: 200419762GDDC

PATIENT
  Age: 44 Year
  Sex: Female

DRUGS (9)
  1. ARAVA [Suspect]
     Indication: RHEUMATOID ARTHRITIS
     Route: 048
  2. METFORMIN [Concomitant]
     Dosage: DOSE: UNK
     Route: 048
  3. PREDNISOLONE [Concomitant]
     Dosage: DOSE: UNK
     Route: 048
  4. FOLIC ACID [Concomitant]
     Dosage: DOSE: UNK
     Route: 048
  5. DICLOFENAC [Concomitant]
     Dosage: DOSE: UNK
     Route: 048
  6. ASPIRIN [Concomitant]
     Dosage: DOSE: UNK
     Route: 048
  7. ATORVASTATIN CALCIUM [Concomitant]
     Dosage: DOSE: UNK
     Route: 048
  8. DOXAZOSIN [Concomitant]
     Dosage: DOSE: UNK
     Route: 048
  9. CO-AMILOFRUSE [Concomitant]
     Dosage: DOSE: UNK
     Route: 048

REACTIONS (1)
  - CARDIOMYOPATHY [None]
